FAERS Safety Report 12252343 (Version 1)
Quarter: 2016Q2

REPORT INFORMATION
  Report Type: Spontaneous
  Country: US (occurrence: None)
  Receive Date: 20160408
  Receipt Date: 20160408
  Transmission Date: 20160815
  Serious: No
  Sender: FDA-Public Use
  Company Number: None

PATIENT
  Age: 62 Year
  Sex: Female

DRUGS (14)
  1. VITAMIN D3 [Concomitant]
     Active Substance: CHOLECALCIFEROL
  2. PROBIOTIC [Concomitant]
     Active Substance: PROBIOTICS NOS
  3. QUETIAPINE. [Concomitant]
     Active Substance: QUETIAPINE
  4. ZINC SULF [Concomitant]
  5. LETROZOLE. [Concomitant]
     Active Substance: LETROZOLE
  6. OMEPRAZOLE. [Concomitant]
     Active Substance: OMEPRAZOLE
  7. ALPRAZOLAM. [Concomitant]
     Active Substance: ALPRAZOLAM
  8. ELIQUIS [Concomitant]
     Active Substance: APIXABAN
  9. IBRANCE [Suspect]
     Active Substance: PALBOCICLIB
     Indication: BREAST CANCER
     Dosage: 1 CAP DAILY X 21 PO
     Route: 048
     Dates: start: 20160323
  10. OXYCODONE [Concomitant]
     Active Substance: OXYCODONE
  11. SERTRALINE [Concomitant]
     Active Substance: SERTRALINE HYDROCHLORIDE
  12. MAGNESIUM-OX [Concomitant]
  13. ZOLPIDEM [Concomitant]
     Active Substance: ZOLPIDEM\ZOLPIDEM TARTRATE
  14. VITAMIN C [Concomitant]
     Active Substance: ASCORBIC ACID

REACTIONS (1)
  - Diarrhoea [None]

NARRATIVE: CASE EVENT DATE: 20160326
